FAERS Safety Report 9642640 (Version 1)
Quarter: 2013Q4

REPORT INFORMATION
  Report Type: Spontaneous
  Country: US (occurrence: US)
  Receive Date: 20131024
  Receipt Date: 20131024
  Transmission Date: 20140711
  Serious: No
  Sender: FDA-Public Use
  Company Number: US-PFIZER INC-2013300527

PATIENT
  Age: 77 Year
  Sex: Female
  Weight: 68.03 kg

DRUGS (5)
  1. PRISTIQ [Suspect]
     Indication: DEPRESSION
     Dosage: 50 MG, DAILY
     Dates: start: 2013
  2. PRISTIQ [Suspect]
     Dosage: 100 MG, 1X/DAY
     Dates: start: 2013, end: 2013
  3. PRISTIQ [Suspect]
     Dosage: 50 MG, DAILY
     Dates: start: 2013
  4. PROTONIX [Concomitant]
     Indication: GASTROOESOPHAGEAL REFLUX DISEASE
     Dosage: 20 MG, 2X/DAY
  5. DILTIAZEM [Concomitant]
     Indication: OESOPHAGEAL SPASM
     Dosage: 30 MG, 2X/DAY

REACTIONS (3)
  - Drug ineffective [Unknown]
  - Malaise [Recovered/Resolved]
  - Vomiting [Recovered/Resolved]
